FAERS Safety Report 4890746-3 (Version None)
Quarter: 2006Q1

REPORT INFORMATION
  Report Type: 
  Country: None (occurrence: None)
  Receive Date: 20060125
  Receipt Date: 20051213
  Transmission Date: 20060701
  Serious: Yes (Other)
  Sender: FDA-Public Use
  Company Number: US-BRISTOL-MYERS SQUIBB COMPANY-13213574

PATIENT

DRUGS (1)
  1. STADOL [Suspect]
     Route: 045

REACTIONS (1)
  - DRUG ABUSER [None]
